FAERS Safety Report 24118897 (Version 1)
Quarter: 2024Q3

REPORT INFORMATION
  Report Type: Spontaneous
  Country: IT (occurrence: IT)
  Receive Date: 20240722
  Receipt Date: 20240722
  Transmission Date: 20241016
  Serious: Yes (Life-Threatening, Hospitalization, Disabling)
  Sender: ACCORD
  Company Number: None

PATIENT
  Age: 55 Year
  Sex: Female

DRUGS (4)
  1. OXALIPLATIN [Suspect]
     Active Substance: OXALIPLATIN
     Indication: Chemotherapy multiple agents systemic
     Dosage: IN ASSOCIATION 9 CYCLES
     Dates: start: 202310
  2. BEVACIZUMAB [Suspect]
     Active Substance: BEVACIZUMAB
     Indication: Chemotherapy multiple agents systemic
     Dosage: PERFORMED 9 CYCLES
     Dates: start: 202310
  3. PREDNISONE [Concomitant]
     Active Substance: PREDNISONE
  4. CAPECITABINE [Concomitant]
     Active Substance: CAPECITABINE

REACTIONS (1)
  - Tumour perforation [Unknown]

NARRATIVE: CASE EVENT DATE: 20240705
